FAERS Safety Report 10566416 (Version 1)
Quarter: 2014Q4

REPORT INFORMATION
  Report Type: Report from Study
  Country: US (occurrence: US)
  Receive Date: 20141105
  Receipt Date: 20141105
  Transmission Date: 20150529
  Serious: No
  Sender: FDA-Public Use
  Company Number: US-ASTRAZENECA-2014SE81531

PATIENT
  Age: 58 Year
  Sex: Female
  Weight: 125.2 kg

DRUGS (4)
  1. ONE A DAY [Concomitant]
     Dosage: DAILY
     Route: 048
     Dates: start: 2004
  2. CRESTOR [Suspect]
     Active Substance: ROSUVASTATIN CALCIUM
     Indication: BLOOD CHOLESTEROL ABNORMAL
     Route: 048
  3. CALCIUM [Concomitant]
     Active Substance: CALCIUM
     Indication: OSTEOPOROSIS
     Route: 048
  4. CRESTOR [Suspect]
     Active Substance: ROSUVASTATIN CALCIUM
     Indication: BLOOD CHOLESTEROL ABNORMAL
     Route: 048
     Dates: end: 2007

REACTIONS (7)
  - Osteoporosis [Unknown]
  - Malaise [Unknown]
  - Drug dose omission [Unknown]
  - Feeling abnormal [Unknown]
  - Mental impairment [Unknown]
  - Off label use [Unknown]
  - Diarrhoea [Unknown]

NARRATIVE: CASE EVENT DATE: 2007
